FAERS Safety Report 9695902 (Version 1)
Quarter: 2013Q4

REPORT INFORMATION
  Report Type: Spontaneous
  Country: US (occurrence: None)
  Receive Date: 20131118
  Receipt Date: 20131118
  Transmission Date: 20140711
  Serious: Yes (Disabling, Other)
  Sender: FDA-Public Use
  Company Number: None

PATIENT
  Age: 61 Year
  Sex: Female
  Weight: 54.43 kg

DRUGS (1)
  1. WATSON FENTANYL PATCH [Suspect]
     Indication: PAIN
     Dosage: CHANGE PATCH EVERY 48 HRS

REACTIONS (1)
  - Product quality issue [None]
